FAERS Safety Report 17652660 (Version 2)
Quarter: 2020Q2

REPORT INFORMATION
  Report Type: Spontaneous
  Country: US (occurrence: US)
  Receive Date: 20200409
  Receipt Date: 20200410
  Transmission Date: 20200713
  Serious: No
  Sender: FDA-Public Use
  Company Number: US-PFIZER INC-2020144320

PATIENT
  Age: 80 Year
  Sex: Female

DRUGS (1)
  1. EUCRISA [Suspect]
     Active Substance: CRISABOROLE
     Indication: ECZEMA
     Dosage: UNK, 2X/DAY (APPLY TO AFFECTED AREA(S) TWICE DAILY)

REACTIONS (3)
  - Skin exfoliation [Unknown]
  - Product use in unapproved indication [Unknown]
  - Off label use [Unknown]
